FAERS Safety Report 7204338-4 (Version None)
Quarter: 2010Q4

REPORT INFORMATION
  Report Type: 
  Country: None (occurrence: None)
  Receive Date: 20101230
  Receipt Date: 20101222
  Transmission Date: 20110411
  Serious: Yes (Other)
  Sender: FDA-Public Use
  Company Number: CA-ROCHE-750075

PATIENT
  Sex: Female
  Weight: 67.5 kg

DRUGS (5)
  1. BEVACIZUMAB [Suspect]
     Indication: NON-SMALL CELL LUNG CANCER METASTATIC
     Route: 042
     Dates: start: 20100625, end: 20100819
  2. BEVACIZUMAB [Suspect]
     Route: 042
     Dates: start: 20101222
  3. DEXAMETHASONE [Concomitant]
  4. KEPPRA [Concomitant]
  5. MULTI-VITAMIN [Concomitant]

REACTIONS (8)
  - ARTHRALGIA [None]
  - ASTHENIA [None]
  - DIZZINESS [None]
  - DYSPNOEA [None]
  - FATIGUE [None]
  - NECK PAIN [None]
  - OEDEMA PERIPHERAL [None]
  - ONCOLOGIC COMPLICATION [None]
